FAERS Safety Report 8591016-2 (Version None)
Quarter: 2012Q3

REPORT INFORMATION
  Report Type: 
  Country: None (occurrence: None)
  Receive Date: 20120813
  Receipt Date: 20120808
  Transmission Date: 20120928
  Serious: Yes (Life-Threatening)
  Sender: FDA-Public Use
  Company Number: FR-PFIZER INC-2012192728

PATIENT
  Age: 75 Year
  Sex: Male

DRUGS (3)
  1. PRADAXA [Interacting]
     Dosage: 110 MG, 2X/DAY
     Route: 048
     Dates: end: 20120712
  2. ZOLOFT [Suspect]
     Dosage: UNK
     Route: 048
  3. ARICEPT [Concomitant]
     Dosage: 5 MG, UNK

REACTIONS (3)
  - SUBARACHNOID HAEMORRHAGE [None]
  - SUBDURAL HAEMATOMA [None]
  - DRUG INTERACTION [None]
